FAERS Safety Report 21983612 (Version 3)
Quarter: 2024Q4

REPORT INFORMATION
  Report Type: Spontaneous
  Country: DE (occurrence: DE)
  Receive Date: 20230213
  Receipt Date: 20241127
  Transmission Date: 20250115
  Serious: Yes (Other)
  Sender: CIPLA
  Company Number: GB-MHRA-MED-202301270949334390-NYPQR

PATIENT

DRUGS (6)
  1. ONDANSETRON [Suspect]
     Active Substance: ONDANSETRON
     Indication: Product used for unknown indication
     Dosage: UNK (40 MG ADMINISTERED VIA THE VASCULAR ACCESS SITE ON THE 24-JAN-2023)
     Route: 065
     Dates: start: 20230124
  2. ONDANSETRON [Suspect]
     Active Substance: ONDANSETRON
     Dosage: 4MG, ADMINISTERED VIA THE VASCULAR ACCESS SITE ON THE 24/1/23
     Route: 065
     Dates: start: 20230124
  3. ESOMEPRAZOLE [Suspect]
     Active Substance: ESOMEPRAZOLE
     Indication: Product used for unknown indication
     Dosage: 40 MG ADMINISTERED VIA THE VASCULAR ACCESS SITE ON THE 24-JAN-2023
     Route: 065
     Dates: start: 20230124
  4. FAMOTIDINE [Concomitant]
     Active Substance: FAMOTIDINE
     Indication: Product used for unknown indication
     Dosage: UNK
     Route: 065
  5. LANSOPRAZOLE [Concomitant]
     Active Substance: LANSOPRAZOLE
     Indication: Product used for unknown indication
     Dosage: UNK
     Route: 065
  6. NAPROXEN [Concomitant]
     Active Substance: NAPROXEN
     Indication: Product used for unknown indication
     Dosage: UNK
     Route: 065

REACTIONS (2)
  - Extravasation [Recovered/Resolved]
  - Administration site inflammation [Unknown]

NARRATIVE: CASE EVENT DATE: 20230124
